FAERS Safety Report 10149410 (Version 1)
Quarter: 2014Q2

REPORT INFORMATION
  Report Type: Spontaneous
  Country: US (occurrence: None)
  Receive Date: 20140430
  Receipt Date: 20140430
  Transmission Date: 20141212
  Serious: Yes (Other)
  Sender: FDA-Public Use
  Company Number: 201404059

PATIENT
  Age: 57 Year
  Sex: Male

DRUGS (1)
  1. TESTIM [Suspect]
     Indication: BLOOD TESTOSTERONE DECREASED
     Dates: start: 201106

REACTIONS (4)
  - Cerebrovascular accident [None]
  - Emotional disorder [None]
  - Physical disability [None]
  - Job dissatisfaction [None]
